FAERS Safety Report 18150905 (Version 1)
Quarter: 2020Q3

REPORT INFORMATION
  Report Type: Spontaneous
  Country: US (occurrence: US)
  Receive Date: 20200814
  Receipt Date: 20200814
  Transmission Date: 20201103
  Serious: Yes (Other)
  Sender: FDA-Public Use
  Company Number: US-ASTRAZENECA-2020SF00785

PATIENT
  Age: 50 Year
  Sex: Female

DRUGS (3)
  1. ZOLADEX [Suspect]
     Active Substance: GOSERELIN ACETATE
     Indication: BREAST CANCER FEMALE
     Dosage: UNKNOWN UNKNOWN
     Route: 058
  2. TAMOXIFEN [Suspect]
     Active Substance: TAMOXIFEN
     Indication: BREAST CANCER FEMALE
     Dosage: UNKNOWN
     Route: 048
  3. FASLODEX [Suspect]
     Active Substance: FULVESTRANT
     Dosage: UNKNOWN
     Route: 030
     Dates: start: 202004

REACTIONS (10)
  - Balance disorder [Unknown]
  - Gene mutation [Unknown]
  - Weight decreased [Unknown]
  - Hydrocephalus [Unknown]
  - Headache [Unknown]
  - Metastases to bone [Unknown]
  - Dizziness [Unknown]
  - Metastases to meninges [Unknown]
  - Metastases to eye [Unknown]
  - Gastrointestinal pain [Unknown]

NARRATIVE: CASE EVENT DATE: 201901
